FAERS Safety Report 4848658-7 (Version None)
Quarter: 2005Q4

REPORT INFORMATION
  Report Type: 
  Country: None (occurrence: None)
  Receive Date: 20051206
  Receipt Date: 20051125
  Transmission Date: 20060501
  Serious: Yes (Other)
  Sender: FDA-Public Use
  Company Number: 2005161945

PATIENT
  Age: 46 Year
  Sex: Male
  Weight: 124 kg

DRUGS (6)
  1. AMLODIPINE [Suspect]
     Indication: ESSENTIAL HYPERTENSION
     Dosage: 10 MG, ORAL
     Route: 048
     Dates: start: 20010122, end: 20051101
  2. RAMIPRIL [Concomitant]
  3. TELMISARTAN (TELMISARTAN) [Concomitant]
  4. SIMVASTATIN [Concomitant]
  5. FLUARIX (INFLUENZA VIRUS VACCINE POLYVALENT) [Concomitant]
  6. MIXTARD HUMAN 70/30 [Concomitant]

REACTIONS (1)
  - ANOSMIA [None]
